FAERS Safety Report 4336028-X (Version None)
Quarter: 2004Q2

REPORT INFORMATION
  Report Type: 
  Country: None (occurrence: None)
  Receive Date: 20040406
  Receipt Date: 20040406
  Transmission Date: 20050107
  Serious: Yes (Life-Threatening)
  Sender: FDA-Public Use
  Company Number: 2004206087FR

PATIENT
  Age: 52 Year
  Sex: Male

DRUGS (5)
  1. PROSTIN VR PEDIATRIC [Suspect]
     Dosage: 0.5 MG/50 ML, IV
     Route: 042
     Dates: start: 20030821, end: 20030822
  2. FLUMUCIL (ACETYLCYSTEINE) [Suspect]
     Dosage: 10 MG/50 ML IV
     Route: 042
     Dates: start: 20030821, end: 20030822
  3. TICARCILLIN DISODIUM/CLAVULANATE POTASSIUM [Concomitant]
  4. SOLU-MEDROL [Concomitant]
  5. TACROLIMUS [Concomitant]

REACTIONS (7)
  - CARDIAC FAILURE [None]
  - DIALYSIS [None]
  - OEDEMA DUE TO CARDIAC DISEASE [None]
  - RESPIRATORY FAILURE [None]
  - SUPRAVENTRICULAR TACHYCARDIA [None]
  - TROPONIN INCREASED [None]
  - VENTRICULAR HYPOKINESIA [None]
